FAERS Safety Report 22726309 (Version 2)
Quarter: 2024Q3

REPORT INFORMATION
  Report Type: Spontaneous
  Country: GB (occurrence: GB)
  Receive Date: 20230720
  Receipt Date: 20240918
  Transmission Date: 20241016
  Serious: No
  Sender: CELLTRION
  Company Number: GB-CELLTRION INC.-2023GB014232

PATIENT

DRUGS (1)
  1. INFLIXIMAB [Suspect]
     Active Substance: INFLIXIMAB
     Indication: Juvenile idiopathic arthritis
     Dosage: 120MG/1ML/  120MG PRE FILLED PEN
     Route: 058
     Dates: start: 202306

REACTIONS (1)
  - Off label use [Unknown]
